FAERS Safety Report 7478323-1 (Version None)
Quarter: 2011Q2

REPORT INFORMATION
  Report Type: 
  Country: None (occurrence: None)
  Receive Date: 20110513
  Receipt Date: 20110505
  Transmission Date: 20111010
  Serious: Yes (Death, Other)
  Sender: FDA-Public Use
  Company Number: PHHY2011US39323

PATIENT
  Age: 42 Year
  Sex: Male

DRUGS (6)
  1. MITOXANTRONE [Suspect]
     Indication: ACUTE LYMPHOCYTIC LEUKAEMIA RECURRENT
  2. SPRYCEL [Suspect]
     Dosage: 100 MG, DAILY
  3. CLOLAR [Suspect]
  4. IMATINIB MESYLATE [Suspect]
     Indication: ACUTE LYMPHOCYTIC LEUKAEMIA RECURRENT
     Dosage: 400 MG, DAILY
     Route: 048
  5. CYTARABINE [Suspect]
     Indication: ACUTE LYMPHOCYTIC LEUKAEMIA RECURRENT
  6. TASIGNA [Suspect]
     Dosage: 400 MG, BID

REACTIONS (8)
  - THROMBOCYTOPENIA [None]
  - LEUKAEMIA [None]
  - MICTURITION DISORDER [None]
  - DRUG INEFFECTIVE [None]
  - SUBDURAL HAEMATOMA [None]
  - HYPOKINESIA [None]
  - MENTAL STATUS CHANGES [None]
  - SWELLING FACE [None]
